FAERS Safety Report 18052586 (Version 3)
Quarter: 2020Q3

REPORT INFORMATION
  Report Type: Spontaneous
  Country: US (occurrence: US)
  Receive Date: 20200721
  Receipt Date: 20200808
  Transmission Date: 20201103
  Serious: Yes (Death, Hospitalization)
  Sender: FDA-Public Use
  Company Number: NVSC2020US204467

PATIENT
  Age: 14 Year
  Sex: Male
  Weight: 44.6 kg

DRUGS (3)
  1. CYTOXAN [Concomitant]
     Active Substance: CYCLOPHOSPHAMIDE
     Indication: CHEMOTHERAPY
     Dosage: UNK
     Route: 065
     Dates: start: 20200602, end: 20200603
  2. FLUDARABINE [Concomitant]
     Active Substance: FLUDARABINE PHOSPHATE
     Indication: CHEMOTHERAPY
     Dosage: UNK
     Route: 042
     Dates: start: 20200602, end: 20200605
  3. KYMRIAH [Suspect]
     Active Substance: TISAGENLECLEUCEL
     Indication: ACUTE LYMPHOCYTIC LEUKAEMIA
     Dosage: UNK, ONCE/SINGLE
     Route: 042
     Dates: start: 20200608, end: 20200608

REACTIONS (4)
  - Cardiac failure acute [Fatal]
  - Multiple organ dysfunction syndrome [Unknown]
  - Cardiomyopathy [Unknown]
  - Hypotension [Unknown]

NARRATIVE: CASE EVENT DATE: 20200612
